FAERS Safety Report 6227623-1 (Version None)
Quarter: 2009Q2

REPORT INFORMATION
  Report Type: 
  Country: None (occurrence: None)
  Receive Date: 20090612
  Receipt Date: 20090602
  Transmission Date: 20091009
  Serious: Yes (Hospitalization)
  Sender: FDA-Public Use
  Company Number: PHHY2009FR10212

PATIENT
  Sex: Male
  Weight: 81 kg

DRUGS (8)
  1. NEORAL [Suspect]
     Indication: RENAL TRANSPLANT
     Dosage: 150 MG/DAY
     Route: 048
     Dates: start: 20000601, end: 20090330
  2. CORTANCYL [Suspect]
     Indication: RENAL TRANSPLANT
     Dosage: 7 MG/DAY
     Route: 048
  3. TAHOR [Suspect]
     Indication: HYPERCHOLESTEROLAEMIA
     Dosage: 80 MG/DAY
     Route: 048
  4. CELLCEPT [Concomitant]
     Indication: RENAL TRANSPLANT
     Dosage: 2 G, UNK
     Route: 048
  5. TRANDATE [Concomitant]
     Indication: HYPERTENSION
     Dosage: 100 MG, UNK
     Route: 048
  6. EUPRESSYL [Concomitant]
     Indication: HYPERTENSION
     Dosage: 180 MG, UNK
  7. COZAAR [Concomitant]
     Indication: HYPERTENSION
     Dosage: 50 MG, UNK
     Route: 048
  8. DIAMOX [Concomitant]
     Dosage: 1 DF/DAY
     Dates: start: 20070101

REACTIONS (2)
  - HEADACHE [None]
  - INTRACRANIAL PRESSURE INCREASED [None]
